FAERS Safety Report 7153634-8 (Version None)
Quarter: 2010Q4

REPORT INFORMATION
  Report Type: 
  Country: None (occurrence: None)
  Receive Date: 20101123
  Receipt Date: 20101020
  Transmission Date: 20110411
  Serious: No
  Sender: FDA-Public Use
  Company Number: 020231

PATIENT
  Sex: Male

DRUGS (1)
  1. CIMZIA [Suspect]
     Indication: CROHN'S DISEASE
     Dosage: SUBCUTANEOUS
     Route: 058
     Dates: start: 20091201

REACTIONS (5)
  - ABDOMINAL PAIN [None]
  - DEFAECATION URGENCY [None]
  - FATIGUE [None]
  - FREQUENT BOWEL MOVEMENTS [None]
  - INFECTION [None]
